FAERS Safety Report 6239101-4 (Version None)
Quarter: 2009Q2

REPORT INFORMATION
  Report Type: 
  Country: None (occurrence: None)
  Receive Date: 20090622
  Receipt Date: 20090609
  Transmission Date: 20091009
  Serious: Yes (Hospitalization, Other)
  Sender: FDA-Public Use
  Company Number: US-ELI_LILLY_AND_COMPANY-US200906003093

PATIENT
  Sex: Female
  Weight: 61.678 kg

DRUGS (7)
  1. GEMZAR [Suspect]
     Indication: LUNG ADENOCARCINOMA STAGE IV
     Dosage: UNK, OTHER
     Dates: start: 20080401, end: 20080801
  2. ALIMTA [Suspect]
     Indication: LUNG ADENOCARCINOMA STAGE IV
     Dosage: 830 MG, OTHER
     Route: 042
     Dates: start: 20090330
  3. CISPLATIN [Concomitant]
     Indication: LUNG ADENOCARCINOMA STAGE IV
     Dosage: UNK, OTHER
     Dates: start: 20080401, end: 20080801
  4. NAVELBINE [Concomitant]
     Indication: LUNG ADENOCARCINOMA STAGE IV
     Dosage: UNK, OTHER
     Dates: start: 20080801, end: 20090301
  5. TAXOTERE [Concomitant]
     Indication: LUNG ADENOCARCINOMA STAGE IV
     Dosage: UNK, OTHER
     Dates: start: 20080801, end: 20090301
  6. AVASTIN [Concomitant]
     Indication: LUNG ADENOCARCINOMA STAGE IV
     Dosage: UNK, OTHER
     Dates: start: 20080801, end: 20090301
  7. DEXAMETHASONE [Concomitant]
     Dosage: 4 MG, UNK
     Route: 048
     Dates: start: 20090330

REACTIONS (12)
  - BLOOD ALKALINE PHOSPHATASE INCREASED [None]
  - BLOOD BILIRUBIN INCREASED [None]
  - BLOOD GLUCOSE INCREASED [None]
  - BLOOD POTASSIUM DECREASED [None]
  - BLOOD SODIUM DECREASED [None]
  - BLOOD UREA INCREASED [None]
  - HAEMATOCRIT DECREASED [None]
  - HAEMOGLOBIN DECREASED [None]
  - NEUTROPHIL COUNT DECREASED [None]
  - PLATELET COUNT ABNORMAL [None]
  - PLATELET COUNT DECREASED [None]
  - WHITE BLOOD CELL COUNT DECREASED [None]
